FAERS Safety Report 14293150 (Version 1)
Quarter: 2017Q4

REPORT INFORMATION
  Report Type: Other
  Country: US (occurrence: US)
  Receive Date: 20171215
  Receipt Date: 20171215
  Transmission Date: 20180321
  Serious: Yes (Hospitalization)
  Sender: FDA-Public Use
  Company Number: US-CVS-2037241

PATIENT
  Age: 68 Year
  Sex: Male

DRUGS (12)
  1. IBUPROFEN. [Concomitant]
     Active Substance: IBUPROFEN
  2. VITAMIN D [Concomitant]
     Active Substance: CHOLECALCIFEROL
  3. FINASTERIDE. [Concomitant]
     Active Substance: FINASTERIDE
  4. TYLENOL [Concomitant]
     Active Substance: ACETAMINOPHEN
  5. MONTELUKAST [Concomitant]
     Active Substance: MONTELUKAST SODIUM
  6. LAXATIVE PILLS [Concomitant]
     Active Substance: SENNOSIDES
  7. ADULT VITAMIN 50 PLUS [Concomitant]
  8. CVS HEALTH DOCUSATE SODIUM 2 TONE [Suspect]
     Active Substance: DOCUSATE SODIUM
     Indication: CONSTIPATION
     Route: 048
     Dates: start: 20171110, end: 20171124
  9. SIMVASTATIN. [Concomitant]
     Active Substance: SIMVASTATIN
  10. 81 MG LOW DOSE ASPIRIN [Concomitant]
     Active Substance: ASPIRIN
  11. TAMSULOSIN HYDROCHLORIDE. [Concomitant]
     Active Substance: TAMSULOSIN HYDROCHLORIDE
  12. GLUCOSAMINE [Concomitant]
     Active Substance: GLUCOSAMINE

REACTIONS (2)
  - Abdominal pain [Recovered/Resolved]
  - Flatulence [Recovered/Resolved]

NARRATIVE: CASE EVENT DATE: 20171124
